FAERS Safety Report 10066935 (Version 4)
Quarter: 2014Q4

REPORT INFORMATION
  Report Type: Report from Study
  Country: BR (occurrence: BR)
  Receive Date: 20140409
  Receipt Date: 20141114
  Transmission Date: 20150528
  Serious: Yes (Other)
  Sender: FDA-Public Use
  Company Number: BR-ROCHE-1374284

PATIENT
  Age: 47 Year
  Sex: Female
  Weight: 63 kg

DRUGS (9)
  1. TRASTUZUMAB EMTANSINE [Suspect]
     Active Substance: ADO-TRASTUZUMAB EMTANSINE
     Indication: HER-2 POSITIVE BREAST CANCER
     Dosage: DOSE OF LAST T-DM1 TAKEN 226.8MG ON 17/MAR/2014
     Route: 042
     Dates: start: 20111205
  2. PROPOFOL. [Concomitant]
     Active Substance: PROPOFOL
     Indication: ENDOSCOPY
     Route: 065
     Dates: start: 20140325, end: 20140325
  3. MIDAZOLAM [Concomitant]
     Active Substance: MIDAZOLAM\MIDAZOLAM HYDROCHLORIDE
     Indication: ENDOSCOPY
     Route: 065
     Dates: start: 20140325, end: 20140325
  4. PLACEBO [Suspect]
     Active Substance: UNSPECIFIED INGREDIENT
     Indication: HER-2 POSITIVE BREAST CANCER
     Dosage: DATE OF LAST DOSE 17/MAR/2014
     Route: 042
     Dates: start: 20111205
  5. NIMESULIDE [Concomitant]
     Active Substance: NIMESULIDE
     Indication: OROPHARYNGEAL PAIN
     Route: 065
     Dates: start: 20140319, end: 20140322
  6. SEDALEX [Concomitant]
     Indication: ARTHRALGIA
     Route: 065
     Dates: start: 2001
  7. BROMAZEPAM [Concomitant]
     Active Substance: BROMAZEPAM
     Indication: INSOMNIA
     Route: 065
     Dates: start: 20130720
  8. FENTANIL [Concomitant]
     Active Substance: FENTANYL
     Indication: ENDOSCOPY
     Route: 065
     Dates: start: 20140325, end: 20140325
  9. PARACETAMOL [Concomitant]
     Active Substance: ACETAMINOPHEN
     Indication: HEADACHE
     Route: 065
     Dates: start: 20140328, end: 20140415

REACTIONS (1)
  - Gastric ulcer [Recovered/Resolved]

NARRATIVE: CASE EVENT DATE: 20140322
